FAERS Safety Report 10452297 (Version 1)
Quarter: 2014Q3

REPORT INFORMATION
  Report Type: Spontaneous
  Country: BR (occurrence: BR)
  Receive Date: 20140915
  Receipt Date: 20140915
  Transmission Date: 20150326
  Serious: Yes (Death, Other)
  Sender: FDA-Public Use
  Company Number: BR-VERTEX PHARMACEUTICALS-2014-003875

PATIENT
  Age: 50 Year
  Sex: Female

DRUGS (1)
  1. INCIVO [Suspect]
     Active Substance: TELAPREVIR
     Indication: PRODUCT USED FOR UNKNOWN INDICATION
     Route: 065

REACTIONS (2)
  - Infection [Fatal]
  - Hepatic cirrhosis [Fatal]
